FAERS Safety Report 6785712-7 (Version None)
Quarter: 2010Q2

REPORT INFORMATION
  Report Type: 
  Country: None (occurrence: None)
  Receive Date: 20100623
  Receipt Date: 20100609
  Transmission Date: 20101027
  Serious: Yes (Death, Hospitalization, Other)
  Sender: FDA-Public Use
  Company Number: PHHY2010DE18485

PATIENT
  Sex: Male
  Weight: 78 kg

DRUGS (7)
  1. ALISKIREN ALI+ [Suspect]
     Indication: HYPERTENSION
     Dosage: 150 MG, PER DAY
     Route: 048
     Dates: start: 20090120, end: 20090531
  2. EUCREAS [Suspect]
     Indication: DIABETES MELLITUS
     Dosage: 2000/100 MG PER DAY
     Route: 048
     Dates: start: 20090417
  3. DIOVAN HCT [Suspect]
     Indication: HYPERTENSION
     Dosage: 1 DF (160/12.5 MG), PER DAY
     Route: 048
     Dates: start: 20050101
  4. PLATELET AGGREGATION INHIBITORS [Concomitant]
     Dosage: UNK
  5. ANTICOAGULANTS [Concomitant]
     Route: 048
  6. METOPROLOL SUCCINATE [Concomitant]
     Indication: HYPERTENSION
     Dosage: 47.5 MG, BID
     Route: 048
     Dates: start: 20080315
  7. SIMVASTATIN [Concomitant]
     Indication: HYPERLIPIDAEMIA
     Dosage: 20 MG, PER DAY
     Route: 048
     Dates: start: 20060719

REACTIONS (6)
  - BLADDER CANCER [None]
  - BLOOD GLUCOSE INCREASED [None]
  - CEREBROVASCULAR ACCIDENT [None]
  - DYSPNOEA [None]
  - OSTEOARTHRITIS [None]
  - RENAL FAILURE CHRONIC [None]
